FAERS Safety Report 22337468 (Version 2)
Quarter: 2024Q1

REPORT INFORMATION
  Report Type: Report from Study
  Country: US (occurrence: US)
  Receive Date: 20230518
  Receipt Date: 20240212
  Transmission Date: 20240410
  Serious: Yes (Other)
  Sender: FDA-Public Use
  Company Number: US-ABBVIE-4769415

PATIENT
  Age: 67 Year
  Sex: Male

DRUGS (5)
  1. SKYRIZI [Suspect]
     Active Substance: RISANKIZUMAB-RZAA
     Indication: Crohn^s disease
     Dosage: FORM STRENGTH: 360 MILLIGRAM, 360MG/2.4 ML
     Route: 058
  2. SKYRIZI [Suspect]
     Active Substance: RISANKIZUMAB-RZAA
     Dosage: FORM STRENGTH: 360 MILLIGRAM, 360MG/2.4 ML, FIRST ADMIN DATE: 08 JAN 2024
     Route: 058
  3. SKYRIZI [Suspect]
     Active Substance: RISANKIZUMAB-RZAA
     Indication: Crohn^s disease
     Dosage: FORM STRENGTH: 600 MILLIGRAM,?WEEK 0
     Route: 042
     Dates: start: 202211, end: 202211
  4. SKYRIZI [Suspect]
     Active Substance: RISANKIZUMAB-RZAA
     Indication: Crohn^s disease
     Dosage: FORM STRENGTH: 600 MILLIGRAM,?WEEK 4
     Route: 042
     Dates: start: 202212, end: 202212
  5. SKYRIZI [Suspect]
     Active Substance: RISANKIZUMAB-RZAA
     Indication: Crohn^s disease
     Dosage: FORM STRENGTH: 600 MILLIGRAM,?WEEK 8
     Route: 042
     Dates: start: 202301, end: 202301

REACTIONS (9)
  - Medical device site haemorrhage [Unknown]
  - Decreased appetite [Unknown]
  - Haematochezia [Unknown]
  - Insomnia [Unknown]
  - Asthenia [Unknown]
  - COVID-19 [Recovered/Resolved]
  - Faeces soft [Unknown]
  - Frequent bowel movements [Unknown]
  - COVID-19 [Recovered/Resolved]

NARRATIVE: CASE EVENT DATE: 20230401
